FAERS Safety Report 15986023 (Version 1)
Quarter: 2019Q1

REPORT INFORMATION
  Report Type: Report from Study
  Country: US (occurrence: US)
  Receive Date: 20190220
  Receipt Date: 20190220
  Transmission Date: 20190418
  Serious: Yes (Other)
  Sender: FDA-Public Use
  Company Number: US-ROCHE-2267988

PATIENT
  Sex: Female
  Weight: 93.07 kg

DRUGS (6)
  1. XYZAL [Concomitant]
     Active Substance: LEVOCETIRIZINE DIHYDROCHLORIDE
     Dosage: ONGOING:UNKNOWN
     Route: 048
     Dates: start: 20180504
  2. PEPCID (UNITED STATES) [Concomitant]
     Dosage: ONGOING:UNKNOWN
     Route: 048
     Dates: start: 20180404
  3. GLIPIZIDE. [Concomitant]
     Active Substance: GLIPIZIDE
     Dosage: ONGOING:UNKNOWN
     Route: 048
     Dates: start: 20180404
  4. PREDNISONE. [Concomitant]
     Active Substance: PREDNISONE
     Dosage: ONGOING:UNKNOWN
     Route: 048
     Dates: start: 20180404
  5. XOLAIR [Suspect]
     Active Substance: OMALIZUMAB
     Dosage: MONTHLY,ONGOING
     Route: 058
     Dates: start: 20180410
  6. XOLAIR [Suspect]
     Active Substance: OMALIZUMAB
     Indication: IDIOPATHIC URTICARIA
     Dosage: ONGOING:UNKNOWN
     Route: 058
     Dates: start: 20180404

REACTIONS (1)
  - Angioedema [Unknown]
